FAERS Safety Report 8277984-7 (Version None)
Quarter: 2012Q2

REPORT INFORMATION
  Report Type: 
  Country: None (occurrence: None)
  Receive Date: 20120412
  Receipt Date: 20120409
  Transmission Date: 20120825
  Serious: Yes (Other)
  Sender: FDA-Public Use
  Company Number: US-TEVA-330031USA

PATIENT
  Age: 59 Year
  Sex: Female

DRUGS (1)
  1. COPAXONE [Suspect]
     Indication: MULTIPLE SCLEROSIS
     Route: 058
     Dates: start: 20120201

REACTIONS (5)
  - LOSS OF CONSCIOUSNESS [None]
  - SWOLLEN TONGUE [None]
  - ANAPHYLACTIC REACTION [None]
  - PALPITATIONS [None]
  - PHARYNGEAL OEDEMA [None]
